FAERS Safety Report 6380304-6 (Version None)
Quarter: 2009Q3

REPORT INFORMATION
  Report Type: 
  Country: None (occurrence: None)
  Receive Date: 20090929
  Receipt Date: 20090831
  Transmission Date: 20100115
  Serious: Yes (Life-Threatening)
  Sender: FDA-Public Use
  Company Number: NZ-ASTRAZENECA-2009SE14454

PATIENT
  Age: 70 Year
  Sex: Female

DRUGS (5)
  1. OMEPRAZOLE [Suspect]
     Dosage: DAILY
     Route: 048
     Dates: start: 20020101
  2. WARFARIN [Suspect]
     Indication: ATRIAL FLUTTER
     Dosage: DAILY
     Route: 048
  3. CANDESARTAN CILEXETIL [Concomitant]
     Dosage: DAILY
     Route: 048
  4. FELODIPINE [Concomitant]
     Dosage: DAILY
     Route: 048
  5. CITALOPRAM [Concomitant]
     Dosage: DAILY
     Route: 048

REACTIONS (2)
  - INTERNATIONAL NORMALISED RATIO DECREASED [None]
  - PULMONARY EMBOLISM [None]
